FAERS Safety Report 5762469-X (Version None)
Quarter: 2008Q2

REPORT INFORMATION
  Report Type: 
  Country: None (occurrence: None)
  Receive Date: 20080527
  Receipt Date: 20070608
  Transmission Date: 20081010
  Serious: Yes (Hospitalization)
  Sender: FDA-Public Use
  Company Number: 501644

PATIENT
  Age: 50 Year
  Sex: Male

DRUGS (16)
  1. VALCYTE [Suspect]
     Indication: DRUG USE FOR UNKNOWN INDICATION
  2. PREDNISONE TAB [Concomitant]
  3. PROCARDIA XL [Concomitant]
  4. FUROSEMIDE [Concomitant]
  5. VITAMIN E (ALPHA-TOCOPHEROL) [Concomitant]
  6. PROTONIX [Concomitant]
  7. PRAVASTATIN SODIUM [Concomitant]
  8. ENTERIC COATED ASA (ASPIRIN) [Concomitant]
  9. FERROUS SULFATE TAB [Concomitant]
  10. ASCORBIC ACID [Concomitant]
  11. 1 CONCOMITANT UNSPECIFIED DRUG (GENERIC UNKNOWN) [Concomitant]
  12. CLOTRIMAZOLE LOZENGE (CLOTRIMAZOLE) [Concomitant]
  13. 1 CONCOMITANT UNSPECIFIED DRUG (GENERIC UNKNOWN) [Concomitant]
  14. NORVASC [Concomitant]
  15. EVEROLIMUS (EVEROLIMUS) [Concomitant]
  16. NEORAL [Concomitant]

REACTIONS (2)
  - ASTHENIA [None]
  - HYPERGLYCAEMIA [None]
